FAERS Safety Report 8617754-0 (Version None)
Quarter: 2012Q3

REPORT INFORMATION
  Report Type: 
  Country: None (occurrence: None)
  Receive Date: 20120824
  Receipt Date: 20120723
  Transmission Date: 20120928
  Serious: Yes (Other)
  Sender: FDA-Public Use
  Company Number: DE-MERCK-1207DEU010569

PATIENT

DRUGS (9)
  1. PREDNISONE TAB [Suspect]
     Dosage: 160 MG, QD
     Dates: start: 20090114, end: 20090118
  2. THALIDOMIDE [Suspect]
     Dosage: 200 MG, QD
     Route: 048
     Dates: start: 20090114, end: 20090119
  3. MELPHALAN HYDROCHLORIDE [Suspect]
     Dosage: 10 MG, QD
     Dates: start: 20090114, end: 20090118
  4. DEXAMETHASONE [Suspect]
     Indication: MULTIPLE MYELOMA
     Dosage: UNK
     Route: 048
     Dates: start: 20110107, end: 20111208
  5. DEXAMETHASONE [Suspect]
     Dosage: UNK
     Route: 048
     Dates: start: 20110107
  6. THALIDOMIDE [Suspect]
     Indication: MULTIPLE MYELOMA
     Dosage: 200 MG, QD
     Route: 048
     Dates: start: 20081016
  7. PREDNISONE TAB [Suspect]
     Indication: MULTIPLE MYELOMA
     Dosage: 160 MG, QD
     Dates: start: 20081016
  8. REVLIMID [Suspect]
     Indication: MULTIPLE MYELOMA
     Dosage: UNK
     Route: 048
     Dates: start: 20110107, end: 20111201
  9. MELPHALAN HYDROCHLORIDE [Suspect]
     Indication: MULTIPLE MYELOMA
     Dosage: 20 MG, QD
     Dates: start: 20081016

REACTIONS (2)
  - CARCINOMA IN SITU OF SKIN [None]
  - SEBACEOUS CARCINOMA [None]
